FAERS Safety Report 6432064-8 (Version None)
Quarter: 2009Q4

REPORT INFORMATION
  Report Type: 
  Country: None (occurrence: None)
  Receive Date: 20091109
  Receipt Date: 20091028
  Transmission Date: 20100525
  Serious: Yes (Hospitalization)
  Sender: FDA-Public Use
  Company Number: US-ROCHE-662986

PATIENT
  Sex: Male
  Weight: 140.2 kg

DRUGS (3)
  1. PEGASYS [Suspect]
     Indication: HEPATITIS C
     Dosage: PRE FILLED SYRINGE
     Route: 065
     Dates: start: 20090810
  2. RIBAVIRIN [Suspect]
     Indication: HEPATITIS C
     Route: 065
     Dates: start: 20090810
  3. RIBAVIRIN [Suspect]
     Dosage: DOSE REDUCED
     Route: 065

REACTIONS (5)
  - AMNESIA [None]
  - ANAEMIA [None]
  - DISORIENTATION [None]
  - TREMOR [None]
  - WEIGHT DECREASED [None]
